FAERS Safety Report 9345097 (Version 1)
Quarter: 2013Q2

REPORT INFORMATION
  Report Type: Spontaneous
  Country: TR (occurrence: TR)
  Receive Date: 20130612
  Receipt Date: 20130612
  Transmission Date: 20140414
  Serious: Yes (Other)
  Sender: FDA-Public Use
  Company Number: TR-BAUSCH-BL-2013-003619

PATIENT
  Age: 50 Year
  Sex: Male

DRUGS (1)
  1. FLURBIPROFEN [Suspect]
     Indication: PRODUCT USED FOR UNKNOWN INDICATION
     Dosage: 100 MG; ORALLY
     Route: 048

REACTIONS (1)
  - Drug eruption [Recovered/Resolved]
